FAERS Safety Report 22325244 (Version 2)
Quarter: 2023Q2

REPORT INFORMATION
  Report Type: Spontaneous
  Country: US (occurrence: None)
  Receive Date: 20230516
  Receipt Date: 20230626
  Transmission Date: 20230722
  Serious: Yes (Other)
  Sender: FDA-Public Use
  Company Number: US-ROCHE-3347612

PATIENT
  Age: 15 Year
  Sex: Male
  Weight: 65.83 kg

DRUGS (3)
  1. NUTROPIN AQ [Suspect]
     Active Substance: SOMATROPIN
     Indication: Developmental delay
     Dosage: 2.2 MG INJECTION ONCE A DAY FOR 6 DAYS A WEEK ;ONGOING: YES
     Route: 065
     Dates: start: 202303
  2. NUTROPIN AQ [Suspect]
     Active Substance: SOMATROPIN
  3. TESTOSTERONE [Concomitant]
     Active Substance: TESTOSTERONE

REACTIONS (3)
  - Off label use [Unknown]
  - Device breakage [Unknown]
  - No adverse event [Unknown]

NARRATIVE: CASE EVENT DATE: 20230301
